FAERS Safety Report 9849635 (Version 1)
Quarter: 2013Q4

REPORT INFORMATION
  Report Type: Spontaneous
  Country: US (occurrence: None)
  Receive Date: 20131226
  Receipt Date: 20131226
  Transmission Date: 20140711
  Serious: Yes (Other)
  Sender: FDA-Public Use
  Company Number: PHEH2012US019039

PATIENT
  Age: 74 Year
  Sex: Male

DRUGS (1)
  1. AFINITOR (RAD) UNKNOWN [Suspect]
     Indication: PROSTATE CANCER
     Route: 048
     Dates: start: 20120907, end: 20120927

REACTIONS (1)
  - Renal failure [None]
